FAERS Safety Report 5458581-5 (Version None)
Quarter: 2007Q3

REPORT INFORMATION
  Report Type: 
  Country: None (occurrence: None)
  Receive Date: 20070919
  Receipt Date: 20070405
  Transmission Date: 20080115
  Serious: Yes (Other)
  Sender: FDA-Public Use
  Company Number: US-ASTRAZENECA-2007UW06888

PATIENT
  Age: 14 Year
  Sex: Male

DRUGS (2)
  1. SEROQUEL [Suspect]
     Route: 048
  2. TRILEPTAL [Concomitant]

REACTIONS (2)
  - SOMNOLENCE [None]
  - SYNCOPE [None]
